FAERS Safety Report 24566551 (Version 3)
Quarter: 2024Q4

REPORT INFORMATION
  Report Type: Spontaneous
  Country: US (occurrence: US)
  Receive Date: 20241030
  Receipt Date: 20241126
  Transmission Date: 20250114
  Serious: No
  Sender: ROCHE
  Company Number: US-ROCHE-10000117521

PATIENT
  Age: 75 Year
  Sex: Female

DRUGS (1)
  1. ALECENSA [Suspect]
     Active Substance: ALECTINIB HYDROCHLORIDE
     Indication: Bronchial carcinoma
     Route: 048

REACTIONS (6)
  - Constipation [Unknown]
  - Diverticulum intestinal [Unknown]
  - Insomnia [Unknown]
  - Dyspepsia [Unknown]
  - Blood sodium decreased [Unknown]
  - Fatigue [Unknown]
